FAERS Safety Report 6817420-8 (Version None)
Quarter: 2010Q3

REPORT INFORMATION
  Report Type: 
  Country: None (occurrence: None)
  Receive Date: 20100706
  Receipt Date: 20100629
  Transmission Date: 20110219
  Serious: Yes (Other)
  Sender: FDA-Public Use
  Company Number: A0867657A

PATIENT
  Age: 86 Year
  Sex: Male

DRUGS (3)
  1. ADVAIR DISKUS 100/50 [Suspect]
     Indication: ASTHMA
     Dosage: 1PUFF TWICE PER DAY
     Route: 055
  2. METFORMIN HCL [Concomitant]
  3. ALBUTEROL [Concomitant]

REACTIONS (3)
  - APHASIA [None]
  - DRUG ADMINISTRATION ERROR [None]
  - DYSPHONIA [None]
